FAERS Safety Report 24640369 (Version 1)
Quarter: 2024Q4

REPORT INFORMATION
  Report Type: Spontaneous
  Country: DE (occurrence: DE)
  Receive Date: 20241120
  Receipt Date: 20241120
  Transmission Date: 20250114
  Serious: Yes (Other)
  Sender: THEA PHARMA INC.
  Company Number: None

PATIENT
  Age: 60 Year
  Sex: Male
  Weight: 63 kg

DRUGS (1)
  1. LATANOPROST [Suspect]
     Active Substance: LATANOPROST
     Indication: Intraocular pressure increased
     Dosage: 1
     Route: 047
     Dates: start: 20240820, end: 20241006

REACTIONS (1)
  - Blood pressure systolic increased [Recovering/Resolving]

NARRATIVE: CASE EVENT DATE: 20241006
